FAERS Safety Report 8092217-2 (Version None)
Quarter: 2012Q1

REPORT INFORMATION
  Report Type: 
  Country: None (occurrence: None)
  Receive Date: 20120129
  Receipt Date: 20111109
  Transmission Date: 20120608
  Serious: No
  Sender: FDA-Public Use
  Company Number: US-ABBOTT-11P-163-0873148-00

PATIENT
  Age: 43 Year
  Sex: Male

DRUGS (2)
  1. ZYRTEC [Concomitant]
     Indication: HYPERSENSITIVITY
  2. HUMIRA [Suspect]
     Indication: CROHN'S DISEASE
     Dates: start: 20110901

REACTIONS (6)
  - FATIGUE [None]
  - ORAL PAIN [None]
  - ORAL DISCOMFORT [None]
  - MALAISE [None]
  - DIZZINESS [None]
  - ASTHENIA [None]
